FAERS Safety Report 8827237 (Version 1)
Quarter: 2012Q4

REPORT INFORMATION
  Report Type: 
  Country: US (occurrence: US)
  Receive Date: 20121005
  Receipt Date: 20121005
  Transmission Date: 20130627
  Serious: Yes (Death, Hospitalization)
  Sender: FDA-Public Use
  Company Number: US-ACTELION-A-NJ2012-69010

PATIENT
  Age: 61 Year
  Sex: Female

DRUGS (2)
  1. TRACLEER [Suspect]
     Indication: PULMONARY ARTERIAL HYPERTENSION
     Dosage: 62.5 mg, bid
     Route: 048
     Dates: start: 20120718, end: 20120920
  2. TRACLEER [Suspect]
     Dosage: UNK
     Route: 048
     Dates: start: 20111007, end: 20120708

REACTIONS (4)
  - Pulmonary hypertension [Fatal]
  - Scleroderma [Fatal]
  - Fluid retention [Recovering/Resolving]
  - Oedema [Recovering/Resolving]
